FAERS Safety Report 7048247-2 (Version None)
Quarter: 2010Q4

REPORT INFORMATION
  Report Type: 
  Country: None (occurrence: None)
  Receive Date: 20101014
  Receipt Date: 20101014
  Transmission Date: 20110411
  Serious: Yes (Other)
  Sender: FDA-Public Use
  Company Number: None

PATIENT
  Age: 70 Year
  Sex: Female
  Weight: 53.0709 kg

DRUGS (1)
  1. LUSEDRA [Suspect]
     Indication: COLONOSCOPY
     Dosage: IV
     Route: 042
     Dates: start: 20101007, end: 20101007

REACTIONS (5)
  - ANXIETY [None]
  - BURNING SENSATION [None]
  - PAIN [None]
  - PARAESTHESIA [None]
  - PRURITUS [None]
